FAERS Safety Report 17909091 (Version 7)
Quarter: 2022Q4

REPORT INFORMATION
  Report Type: Spontaneous
  Country: US (occurrence: US)
  Receive Date: 20200617
  Receipt Date: 20221026
  Transmission Date: 20230112
  Serious: Yes (Hospitalization)
  Sender: FDA-Public Use
  Company Number: US-NOVARTISPH-NVSC2020US169144

PATIENT
  Sex: Female

DRUGS (5)
  1. PROMACTA [Suspect]
     Active Substance: ELTROMBOPAG OLAMINE
     Indication: Immune thrombocytopenia
     Dosage: 75 MG, QD (STRENGTH 75 MG)
     Route: 048
     Dates: start: 20200422
  2. PROMACTA [Suspect]
     Active Substance: ELTROMBOPAG OLAMINE
     Dosage: 75 MG, QD, (STRENGTH 75 MG)
     Route: 048
     Dates: start: 20200428
  3. PROMACTA [Suspect]
     Active Substance: ELTROMBOPAG OLAMINE
     Dosage: 75 MG, QD (STRENGTH 25 MG)
     Route: 048
     Dates: start: 20200506
  4. PROMACTA [Suspect]
     Active Substance: ELTROMBOPAG OLAMINE
     Dosage: 75 MG, QD (STRENGTH 75 MG)
     Route: 048
     Dates: start: 202006
  5. PROMACTA [Suspect]
     Active Substance: ELTROMBOPAG OLAMINE
     Dosage: 50 MG, QD (STRENGTH 50 MG)
     Route: 048
     Dates: start: 20210113

REACTIONS (9)
  - Skin discolouration [Unknown]
  - Asthenia [Unknown]
  - Vision blurred [Unknown]
  - Memory impairment [Unknown]
  - Throat irritation [Unknown]
  - Fatigue [Unknown]
  - Abdominal pain upper [Unknown]
  - Headache [Unknown]
  - Adverse drug reaction [Unknown]
